FAERS Safety Report 15092882 (Version 1)
Quarter: 2018Q2

REPORT INFORMATION
  Report Type: Spontaneous
  Country: ES (occurrence: ES)
  Receive Date: 20180629
  Receipt Date: 20180629
  Transmission Date: 20180711
  Serious: Yes (Life-Threatening, Hospitalization)
  Sender: FDA-Public Use
  Company Number: ES-JNJFOC-20180634887

PATIENT
  Age: 37 Year
  Sex: Female
  Weight: 53 kg

DRUGS (2)
  1. STELARA [Suspect]
     Active Substance: USTEKINUMAB
     Indication: CROHN^S DISEASE
     Dosage: 2 VIALS
     Route: 042
     Dates: start: 201806
  2. IMUREL [Concomitant]
     Active Substance: AZATHIOPRINE SODIUM
     Route: 065

REACTIONS (2)
  - Thrombosis [Unknown]
  - Cerebral haemorrhage [Unknown]

NARRATIVE: CASE EVENT DATE: 201806
